FAERS Safety Report 10271066 (Version 2)
Quarter: 2015Q1

REPORT INFORMATION
  Report Type: Report from Study
  Country: US (occurrence: US)
  Receive Date: 20140701
  Receipt Date: 20150310
  Transmission Date: 20150720
  Serious: Yes (Death)
  Sender: FDA-Public Use
  Company Number: US-BAXTER-2014BAX035286

PATIENT

DRUGS (4)
  1. HYDROCORTISONE. [Suspect]
     Active Substance: HYDROCORTISONE
     Indication: PREMEDICATION
     Dosage: 1 CYCLE; TWO INFUSIONS PER WEEK (72 TO 96 H APART) FOR 2 WEEKS (FOR A TOTAL OF 4 INFUSIONS) FOLLOWED
     Route: 042
  2. ONDANSETRON [Suspect]
     Active Substance: ONDANSETRON
     Indication: PREMEDICATION
     Dosage: 1 CYCLE; TWO INFUSIONS PER WEEK (72 TO 96 H APART) FOR 2 WEEKS (FOR A TOTAL OF 4 INFUSIONS) FOLLOWED
     Route: 042
  3. BUMINATE [Suspect]
     Active Substance: ALBUMIN (HUMAN)
     Indication: MYELOID LEUKAEMIA
     Dosage: 1 CYCLE; TWO INFUSIONS PER WEEK (72 TO 96 H APART) FOR 2 WEEKS (FOR A TOTAL OF 4 INFUSIONS) FOLLOWED
     Route: 042
  4. PLASMALYTE [Suspect]
     Active Substance: ELECTROLYTES NOS
     Indication: MYELOID LEUKAEMIA
     Dosage: 1 CYCLE; TWO INFUSIONS PER WEEK (72 TO 96 H APART) FOR 2 WEEKS (FOR A TOTAL OF 4 INFUSIONS) FOLLOWED
     Route: 042

REACTIONS (1)
  - Myocardial infarction [Fatal]
